FAERS Safety Report 19766896 (Version 1)
Quarter: 2021Q3

REPORT INFORMATION
  Report Type: Spontaneous
  Country: US (occurrence: US)
  Receive Date: 20210830
  Receipt Date: 20210830
  Transmission Date: 20211014
  Serious: Yes (Other)
  Sender: FDA-Public Use
  Company Number: None

PATIENT
  Age: 64 Year
  Sex: Male
  Weight: 192.3 kg

DRUGS (3)
  1. TRULICITY [Suspect]
     Active Substance: DULAGLUTIDE
     Indication: DIABETES MELLITUS
     Dosage: ?          OTHER FREQUENCY:ONCE A WEEK;?
     Route: 058
  2. INSULIN ASPART [Concomitant]
     Active Substance: INSULIN ASPART
  3. INSULIN GLARGINE [Concomitant]
     Active Substance: INSULIN GLARGINE

REACTIONS (5)
  - Product label issue [None]
  - Incorrect dose administered [None]
  - Hypoglycaemia [None]
  - Product quality issue [None]
  - Recalled product administered [None]
